FAERS Safety Report 7316356-6 (Version None)
Quarter: 2011Q1

REPORT INFORMATION
  Report Type: 
  Country: None (occurrence: None)
  Receive Date: 20110225
  Receipt Date: 20110216
  Transmission Date: 20110831
  Serious: Yes (Other)
  Sender: FDA-Public Use
  Company Number: US-ASTRAZENECA-2011SE09087

PATIENT
  Sex: Male

DRUGS (4)
  1. BISPROL [Concomitant]
  2. SYMBICORT [Suspect]
     Route: 055
  3. PLAVIX [Concomitant]
  4. ZOCOR [Concomitant]

REACTIONS (2)
  - CARDIAC DISORDER [None]
  - MYOCARDIAL INFARCTION [None]
